FAERS Safety Report 13195566 (Version 1)
Quarter: 2017Q1

REPORT INFORMATION
  Report Type: Spontaneous
  Country: US (occurrence: US)
  Receive Date: 20170207
  Receipt Date: 20170207
  Transmission Date: 20170428
  Serious: Yes (Other)
  Sender: FDA-Public Use
  Company Number: None

PATIENT
  Age: 31 Year
  Sex: Female
  Weight: 60.38 kg

DRUGS (5)
  1. MEXYPROGESTERONE [Concomitant]
  2. IRON [Concomitant]
     Active Substance: IRON
  3. LEXAPRO [Concomitant]
     Active Substance: ESCITALOPRAM OXALATE
  4. LOW DOSE ASPIRIN [Concomitant]
     Active Substance: ASPIRIN
  5. PARAGARD T 380A [Suspect]
     Active Substance: COPPER
     Dates: start: 20150301

REACTIONS (2)
  - Haemorrhage [None]
  - Device dislocation [None]

NARRATIVE: CASE EVENT DATE: 20170125
